FAERS Safety Report 8934925 (Version 2)
Quarter: 2012Q4

REPORT INFORMATION
  Report Type: Report from Study
  Country: JP (occurrence: JP)
  Receive Date: 20121129
  Receipt Date: 20121221
  Transmission Date: 20130627
  Serious: No
  Sender: FDA-Public Use
  Company Number: JP-US-EMD SERONO, INC.-7177090

PATIENT
  Sex: Female
  Weight: 60 kg

DRUGS (15)
  1. GONAL-F RFF PEN [Suspect]
     Indication: OVULATION INDUCTION
     Dosage: first cycle
     Route: 058
     Dates: start: 20111130, end: 20111211
  2. GONAL-F RFF PEN [Suspect]
     Indication: POLYCYSTIC OVARIES
     Dosage: first cycle
     Route: 058
     Dates: start: 20111212, end: 20111217
  3. GONAL-F RFF PEN [Suspect]
     Dosage: second course
     Route: 058
     Dates: start: 20120206, end: 20120219
  4. GONAL-F RFF PEN [Suspect]
     Dosage: second course
     Route: 058
     Dates: start: 20120220, end: 20120225
  5. GONAL-F RFF PEN [Suspect]
     Dosage: third course
     Route: 058
     Dates: start: 20120515, end: 20120526
  6. GONAL-F RFF PEN [Suspect]
     Dosage: third course
     Route: 058
     Dates: start: 20120527, end: 20120601
  7. PLANOVAR [Concomitant]
     Indication: ORAL CONTRACEPTION
     Route: 048
     Dates: start: 20111110, end: 20111119
  8. PLANOVAR [Concomitant]
     Route: 048
     Dates: start: 20120120, end: 20120129
  9. SUPRECUR [Concomitant]
     Indication: OVULATION INDUCTION
     Route: 045
     Dates: start: 20111219, end: 20111219
  10. LUTORAL [Concomitant]
     Indication: PRODUCT USED FOR UNKNOWN INDICATION
     Route: 048
     Dates: start: 20111222, end: 20111231
  11. LUTORAL [Concomitant]
     Route: 048
     Dates: start: 20120229, end: 20120309
  12. LUTORAL [Concomitant]
     Route: 048
     Dates: start: 20120605, end: 20120614
  13. HCG [Concomitant]
     Indication: OVULATION INDUCTION
     Route: 030
     Dates: start: 20120226, end: 20120226
  14. HCG [Concomitant]
     Route: 030
     Dates: start: 20120602, end: 20120602
  15. PROGESTON DEPOT [Concomitant]
     Indication: PRODUCT USED FOR UNKNOWN INDICATION
     Route: 030
     Dates: start: 20111222, end: 20111222

REACTIONS (1)
  - Ovarian hyperstimulation syndrome [Recovered/Resolved]
